FAERS Safety Report 8658785 (Version 3)
Quarter: 2012Q4

REPORT INFORMATION
  Report Type: 
  Country: JP (occurrence: JP)
  Receive Date: 20120709
  Receipt Date: 20120830
  Transmission Date: 20130627
  Serious: Yes (Hospitalization)
  Sender: FDA-Public Use
  Company Number: JP-ASTELLAS-2012JP004839

PATIENT
  Age: 77 None
  Sex: Male
  Weight: 53.15 kg

DRUGS (8)
  1. BETANIS [Suspect]
     Indication: POLLAKIURIA
     Dosage: 50 mg, UID/QD
     Route: 048
     Dates: start: 201202, end: 201203
  2. ATELEC [Concomitant]
     Indication: HYPERTENSION
     Dosage: 10 mg, UID/QD
     Route: 048
  3. MICARDIS [Concomitant]
     Indication: HYPERTENSION
     Dosage: 40 mg, UID/QD
     Route: 048
  4. GASTER [Concomitant]
     Indication: GASTRITIS
     Dosage: 20 mg, UID/QD
     Route: 048
  5. RIZE                               /00624801/ [Concomitant]
     Indication: INSOMNIA
     Dosage: 5 mg, UID/QD
     Route: 048
  6. AMARYL [Concomitant]
     Indication: DIABETES MELLITUS
     Dosage: 2 mg, UID/QD
     Route: 048
  7. URSO                               /00465701/ [Concomitant]
     Indication: LIVER DISORDER
     Dosage: 200 mg, tid
     Route: 048
  8. VESICARE [Concomitant]
     Indication: POLLAKIURIA
     Dosage: 2.5 mg, UID/QD
     Route: 048

REACTIONS (1)
  - Hypoproteinaemia [Recovering/Resolving]
